FAERS Safety Report 6155046-2 (Version None)
Quarter: 2009Q2

REPORT INFORMATION
  Report Type: 
  Country: None (occurrence: None)
  Receive Date: 20090410
  Receipt Date: 20090330
  Transmission Date: 20091009
  Serious: Yes (Other)
  Sender: FDA-Public Use
  Company Number: ADE2009-0534

PATIENT
  Age: 50 Day

DRUGS (3)
  1. CEFTRIAXONE [Suspect]
     Dosage: 50MG/KG, IV
     Route: 042
  2. CALCIUM CONTAINING HYPERALIMENTATION [Suspect]
  3. GENTAMICIN [Concomitant]

REACTIONS (3)
  - APNOEA [None]
  - BRADYCARDIA [None]
  - SHOCK [None]
